FAERS Safety Report 7657278-0 (Version None)
Quarter: 2011Q3

REPORT INFORMATION
  Report Type: 
  Country: None (occurrence: None)
  Receive Date: 20110804
  Receipt Date: 20110725
  Transmission Date: 20111222
  Serious: Yes (Other)
  Sender: FDA-Public Use
  Company Number: PHHY2011US66240

PATIENT
  Age: 44 Year
  Sex: Female

DRUGS (4)
  1. VITAMIN D2 [Concomitant]
     Dosage: UNK UKN, OT
  2. DIAZEPAM [Concomitant]
     Dosage: UNK UKN, OT
  3. TOPAMAX [Concomitant]
     Dosage: UNK UKN, OT
  4. GILENYA [Suspect]
     Indication: MULTIPLE SCLEROSIS
     Dosage: 0.5 MG, QD
     Route: 048
     Dates: start: 20110225, end: 20110505

REACTIONS (8)
  - BLOOD PRESSURE INCREASED [None]
  - NASOPHARYNGITIS [None]
  - BACK PAIN [None]
  - HEADACHE [None]
  - CONJUNCTIVITIS [None]
  - PALPITATIONS [None]
  - CYSTITIS [None]
  - DYSPNOEA [None]
